FAERS Safety Report 4365849-2 (Version None)
Quarter: 2004Q2

REPORT INFORMATION
  Report Type: 
  Country: None (occurrence: None)
  Receive Date: 20040521
  Receipt Date: 20040517
  Transmission Date: 20050107
  Serious: Yes (Life-Threatening, Hospitalization)
  Sender: FDA-Public Use
  Company Number: UKP04000191

PATIENT
  Age: 86 Year
  Sex: Female

DRUGS (10)
  1. ACTONEL [Suspect]
     Dosage: 35 MG, 1/WEEK, ORAL
     Route: 048
     Dates: end: 20040424
  2. ACETYLSALICYLIC ACID SRT [Suspect]
     Dosage: 75 MG, MORNING, ORAL
     Route: 048
     Dates: start: 20021201, end: 20040422
  3. FUROSEMIDE [Concomitant]
  4. ADCAL-D3 [Concomitant]
  5. SALBUTAMOL (SALBUTAMOL) [Concomitant]
  6. ATROVENT [Concomitant]
  7. SERETIDE  ALLEN + HANSBURYS LTD  (SALMETEROL, FLUTICASONE PROPIONATE) [Concomitant]
  8. RAMIPRIL [Concomitant]
  9. FLUOXETINE [Concomitant]
  10. TEMAZEPAM [Concomitant]

REACTIONS (2)
  - ANAEMIA [None]
  - MELAENA [None]
